FAERS Safety Report 10934218 (Version 1)
Quarter: 2015Q1

REPORT INFORMATION
  Report Type: Report from Study
  Country: US (occurrence: US)
  Receive Date: 20150320
  Receipt Date: 20150320
  Transmission Date: 20150721
  Serious: Yes (Death, Hospitalization, Other)
  Sender: FDA-Public Use
  Company Number: US-JNJFOC-20150217918

PATIENT
  Age: 78 Year
  Sex: Male
  Weight: 104 kg

DRUGS (30)
  1. ASPIRIN. [Suspect]
     Active Substance: ASPIRIN
     Indication: PYREXIA
     Dates: start: 20141031
  2. DILTIAZEM [Concomitant]
     Active Substance: DILTIAZEM
     Dates: end: 20131118
  3. ZOFRAN [Concomitant]
     Active Substance: ONDANSETRON HYDROCHLORIDE
     Route: 048
     Dates: end: 20141027
  4. AVELOX [Concomitant]
     Active Substance: MOXIFLOXACIN HYDROCHLORIDE
     Route: 048
     Dates: start: 20141031
  5. CYCLOPHOSPHAMIDE W/PREDNISONE/RITUXIMAB/VINCRISTINE [Concomitant]
     Indication: MANTLE CELL LYMPHOMA
  6. LASIX [Concomitant]
     Active Substance: FUROSEMIDE
     Indication: OEDEMA
     Dates: start: 20141031
  7. VICODIN [Concomitant]
     Active Substance: ACETAMINOPHEN\HYDROCODONE BITARTRATE
     Dates: start: 20140206
  8. IMBRUVICA [Suspect]
     Active Substance: IBRUTINIB
     Indication: MANTLE CELL LYMPHOMA
     Route: 048
     Dates: start: 201412, end: 2015
  9. XOLAIR [Concomitant]
     Active Substance: OMALIZUMAB
  10. AVODART [Concomitant]
     Active Substance: DUTASTERIDE
     Dates: start: 20131118
  11. OCUVITE (VITAMIN COMBINATIONS) [Concomitant]
     Route: 048
     Dates: start: 20131118
  12. PREDNISONE. [Concomitant]
     Active Substance: PREDNISONE
     Route: 048
     Dates: start: 20141028
  13. MULTIVITAMINS [Concomitant]
     Active Substance: VITAMINS
     Dates: start: 20131118
  14. AMBIEN [Concomitant]
     Active Substance: ZOLPIDEM TARTRATE
     Route: 048
     Dates: start: 20131118
  15. IPRATROPIUM [Concomitant]
     Active Substance: IPRATROPIUM
     Route: 055
     Dates: start: 20131118
  16. TEMAZEPAM. [Concomitant]
     Active Substance: TEMAZEPAM
  17. DALIRESP [Concomitant]
     Active Substance: ROFLUMILAST
  18. HEPARIN [Suspect]
     Active Substance: HEPARIN SODIUM
     Indication: PRODUCT USED FOR UNKNOWN INDICATION
  19. SINGULAIR [Concomitant]
     Active Substance: MONTELUKAST SODIUM
  20. COMBIVENT [Concomitant]
     Active Substance: ALBUTEROL SULFATE\IPRATROPIUM BROMIDE
     Dates: start: 20131118
  21. MAGNESIUM [Concomitant]
     Active Substance: MAGNESIUM
  22. ZYRTEC [Concomitant]
     Active Substance: CETIRIZINE HYDROCHLORIDE
  23. SPIRIVA [Concomitant]
     Active Substance: TIOTROPIUM BROMIDE MONOHYDRATE
     Route: 055
     Dates: start: 20131118
  24. SYMBICORT [Concomitant]
     Active Substance: BUDESONIDE\FORMOTEROL FUMARATE DIHYDRATE
     Route: 055
     Dates: start: 20131118
  25. HYDROCODONE BITARTRATE AND ACETAMINOPHEN [Concomitant]
     Active Substance: ACETAMINOPHEN\HYDROCODONE BITARTRATE
     Route: 048
  26. CHONDROITIN SULFATE (BOVINE)\DIMETHYL SULFONE\GLUCOSAMINE SULFATE [Concomitant]
     Active Substance: CHONDROITIN SULFATE (BOVINE)\DIMETHYL SULFONE\GLUCOSAMINE SULFATE
     Route: 048
     Dates: end: 20131118
  27. LEXAPRO [Concomitant]
     Active Substance: ESCITALOPRAM OXALATE
     Route: 048
     Dates: start: 20131118
  28. TRAMADOL [Concomitant]
     Active Substance: TRAMADOL
  29. TYLENOL [Concomitant]
     Active Substance: ACETAMINOPHEN
     Route: 048
     Dates: start: 20131118
  30. PRILOSEC [Concomitant]
     Active Substance: OMEPRAZOLE MAGNESIUM
     Route: 048
     Dates: start: 20131118

REACTIONS (5)
  - Haemorrhage [Unknown]
  - Osteopenia [Unknown]
  - Chronic obstructive pulmonary disease [Fatal]
  - Cardiac failure congestive [Unknown]
  - Rib fracture [Unknown]

NARRATIVE: CASE EVENT DATE: 201501
